FAERS Safety Report 12927075 (Version 2)
Quarter: 2017Q1

REPORT INFORMATION
  Report Type: Spontaneous
  Country: US (occurrence: US)
  Receive Date: 20161109
  Receipt Date: 20170105
  Transmission Date: 20170428
  Serious: No
  Sender: FDA-Public Use
  Company Number: US-ASTRAZENECA-2016SF13248

PATIENT
  Sex: Female
  Weight: 74.8 kg

DRUGS (2)
  1. SYMBICORT [Suspect]
     Active Substance: BUDESONIDE\FORMOTEROL FUMARATE DIHYDRATE
     Indication: DYSPNOEA
     Dosage: 160-4.5 MCG, 2 PUFFS TWICE A DAY
     Route: 055
  2. SYMBICORT [Suspect]
     Active Substance: BUDESONIDE\FORMOTEROL FUMARATE DIHYDRATE
     Indication: ASTHMA
     Dosage: 160-4.5 MCG, 2 PUFFS TWICE A DAY
     Route: 055

REACTIONS (7)
  - Gait disturbance [Unknown]
  - Fatigue [Unknown]
  - Sleep disorder [Unknown]
  - Device use error [Unknown]
  - Dyspnoea [Unknown]
  - Visual acuity reduced [Unknown]
  - Intentional product misuse [Unknown]
